FAERS Safety Report 6351046-8 (Version None)
Quarter: 2009Q3

REPORT INFORMATION
  Report Type: 
  Country: None (occurrence: None)
  Receive Date: 20090912
  Receipt Date: 20090622
  Transmission Date: 20100115
  Serious: No
  Sender: FDA-Public Use
  Company Number: US-ABBOTT-07P-163-0373706-00

PATIENT
  Sex: Female
  Weight: 65.83 kg

DRUGS (3)
  1. HUMIRA [Suspect]
     Indication: CROHN'S DISEASE
     Dosage: 160 MG 1 X
     Route: 058
     Dates: start: 20070703
  2. HUMIRA [Suspect]
     Dosage: 80MG 1X
     Route: 058
  3. HUMIRA [Suspect]
     Route: 058

REACTIONS (1)
  - INCORRECT DOSE ADMINISTERED [None]
